FAERS Safety Report 10646438 (Version 1)
Quarter: 2014Q4

REPORT INFORMATION
  Report Type: Spontaneous
  Country: US (occurrence: US)
  Receive Date: 20141211
  Receipt Date: 20141211
  Transmission Date: 20150529
  Serious: No
  Sender: FDA-Public Use
  Company Number: US-BAYER-2014-181663

PATIENT
  Age: 65 Year
  Sex: Male
  Weight: 136.5 kg

DRUGS (4)
  1. ZETIA [Concomitant]
     Active Substance: EZETIMIBE
  2. ALEVE PM [Suspect]
     Active Substance: DIPHENHYDRAMINE HYDROCHLORIDE\NAPROXEN SODIUM
     Dosage: UNK
     Route: 048
     Dates: start: 20141207
  3. TRIAMTERENE. [Concomitant]
     Active Substance: TRIAMTERENE
  4. ALLOPURINOL. [Concomitant]
     Active Substance: ALLOPURINOL
     Dosage: UNK UNK, PRN

REACTIONS (3)
  - Extra dose administered [None]
  - Fatigue [Unknown]
  - Drug ineffective [None]

NARRATIVE: CASE EVENT DATE: 20141207
